FAERS Safety Report 5732816-3 (Version None)
Quarter: 2008Q2

REPORT INFORMATION
  Report Type: 
  Country: None (occurrence: None)
  Receive Date: 20080507
  Receipt Date: 20080507
  Transmission Date: 20081010
  Serious: Yes (Hospitalization)
  Sender: FDA-Public Use
  Company Number: None

PATIENT
  Sex: Male
  Weight: 136 kg

DRUGS (4)
  1. CYCLOPHOSPHAMIDE [Suspect]
     Dosage: 1860 MG
     Dates: end: 20080408
  2. DOXORUBICIN HYDROCHLORIDE [Suspect]
     Dosage: 124 MG
     Dates: end: 20080408
  3. PREDNISONE TAB [Suspect]
     Dosage: 500 MG
     Dates: end: 20080412
  4. VINCRISTINE SULFATE [Suspect]
     Dosage: 2 MG
     Dates: end: 20080408

REACTIONS (5)
  - ACUTE RESPIRATORY DISTRESS SYNDROME [None]
  - NEUTROPENIA [None]
  - PNEUMONIA [None]
  - PULMONARY OEDEMA [None]
  - RESPIRATORY FAILURE [None]
